FAERS Safety Report 16304810 (Version 3)
Quarter: 2019Q2

REPORT INFORMATION
  Report Type: Report from Study
  Country: US (occurrence: US)
  Receive Date: 20190513
  Receipt Date: 20190607
  Transmission Date: 20190711
  Serious: Yes (Hospitalization)
  Sender: FDA-Public Use
  Company Number: US-ACTELION-A-NJ2019-190252

PATIENT
  Age: 43 Year
  Sex: Male

DRUGS (7)
  1. ATIVAN [Concomitant]
     Active Substance: LORAZEPAM
  2. BUMETANIDE. [Concomitant]
     Active Substance: BUMETANIDE
  3. WARFARIN [Concomitant]
     Active Substance: WARFARIN
  4. MICRO-K [Concomitant]
     Active Substance: POTASSIUM CHLORIDE
  5. OPSUMIT [Suspect]
     Active Substance: MACITENTAN
     Indication: PULMONARY ARTERIAL HYPERTENSION
     Dosage: 10 MG, QD
     Route: 048
     Dates: start: 201811
  6. SPIRONOLACTONE. [Concomitant]
     Active Substance: SPIRONOLACTONE
  7. TADALAFIL. [Concomitant]
     Active Substance: TADALAFIL

REACTIONS (2)
  - Cardiac pacemaker replacement [Not Recovered/Not Resolved]
  - Post procedural complication [Not Recovered/Not Resolved]

NARRATIVE: CASE EVENT DATE: 20190419
